FAERS Safety Report 7523994-4 (Version None)
Quarter: 2011Q2

REPORT INFORMATION
  Report Type: 
  Country: None (occurrence: None)
  Receive Date: 20110604
  Receipt Date: 20110523
  Transmission Date: 20111010
  Serious: Yes (Other)
  Sender: FDA-Public Use
  Company Number: US-AMGEN-USASP2011027237

PATIENT
  Age: 58 Year
  Sex: Female
  Weight: 53.832 kg

DRUGS (17)
  1. CLONIDINE [Concomitant]
     Dosage: 0.2 MG, UNK
  2. CELEXA [Concomitant]
  3. COREG [Concomitant]
     Dosage: UNK UNK, BID
  4. HYDRALAZINE HCL [Concomitant]
     Dosage: 50 MG, TID
  5. PROCRIT [Suspect]
     Indication: RENAL CANCER
  6. RESTORIL [Concomitant]
  7. FOSAMAX [Concomitant]
     Dosage: 35 MG, QWK
  8. BACTRIM [Concomitant]
  9. PREDNISONE [Concomitant]
  10. CELLCEPT                           /01275102/ [Concomitant]
     Dosage: 750 MG, BID
  11. ASPIRIN [Concomitant]
  12. PROCRIT [Suspect]
     Indication: NEPHRECTOMY
  13. CALCITRIOL [Concomitant]
  14. VITAMIN B COMPLEX                  /00003501/ [Concomitant]
  15. AMLODIPINE BESYLATE [Concomitant]
  16. METAMUCIL                          /00029101/ [Concomitant]
  17. FUROSEMIDE [Concomitant]

REACTIONS (4)
  - BONE MARROW DISORDER [None]
  - ANAEMIA [None]
  - THERAPEUTIC RESPONSE DECREASED [None]
  - HYPOTENSION [None]
